FAERS Safety Report 26191110 (Version 1)
Quarter: 2025Q4

REPORT INFORMATION
  Report Type: Spontaneous
  Country: US (occurrence: US)
  Receive Date: 20251223
  Receipt Date: 20251223
  Transmission Date: 20260118
  Serious: No
  Sender: AMGEN
  Company Number: US-AMGEN-USASP2025250304

PATIENT
  Sex: Female

DRUGS (3)
  1. PAVBLU [Suspect]
     Active Substance: AFLIBERCEPT-AYYH
     Indication: Product used for unknown indication
     Dosage: UNK, Q4WK
     Route: 065
  2. PAVBLU [Suspect]
     Active Substance: AFLIBERCEPT-AYYH
     Dosage: UNK, Q6WK
     Route: 065
  3. PAVBLU [Suspect]
     Active Substance: AFLIBERCEPT-AYYH
     Dosage: UNK, Q7WK
     Route: 065

REACTIONS (8)
  - Eye pain [Not Recovered/Not Resolved]
  - Dry eye [Not Recovered/Not Resolved]
  - Headache [Not Recovered/Not Resolved]
  - Onychoclasis [Not Recovered/Not Resolved]
  - Eye disorder [Unknown]
  - Onychalgia [Not Recovered/Not Resolved]
  - Depressed mood [Not Recovered/Not Resolved]
  - Inappropriate schedule of product administration [Unknown]
